FAERS Safety Report 5565155-4 (Version None)
Quarter: 2007Q4

REPORT INFORMATION
  Report Type: 
  Country: None (occurrence: None)
  Receive Date: 20071213
  Receipt Date: 20071213
  Transmission Date: 20080405
  Serious: Yes (Hospitalization)
  Sender: FDA-Public Use
  Company Number: None

PATIENT
  Age: 40 Year
  Sex: Male
  Weight: 86.1834 kg

DRUGS (2)
  1. LEVAQUIN [Suspect]
     Indication: SINUSITIS
     Dosage: 500 MG  1 DAY  PO
     Route: 048
     Dates: start: 20020202, end: 20020212
  2. LEVAQUIN [Suspect]
     Indication: SINUSITIS
     Dosage: 500 MG  1 DAY  PO
     Route: 048
     Dates: start: 20050308, end: 20050318

REACTIONS (9)
  - ARTHRALGIA [None]
  - BLOOD PRESSURE DIASTOLIC INCREASED [None]
  - FEELING HOT [None]
  - INSOMNIA [None]
  - MYALGIA [None]
  - NERVOUS SYSTEM DISORDER [None]
  - PANIC ATTACK [None]
  - TENDONITIS [None]
  - VERTIGO [None]
